FAERS Safety Report 9552443 (Version 1)
Quarter: 2013Q3

REPORT INFORMATION
  Report Type: Spontaneous
  Country: US (occurrence: US)
  Receive Date: 20130925
  Receipt Date: 20130925
  Transmission Date: 20140515
  Serious: No
  Sender: FDA-Public Use
  Company Number: US-PFIZER INC-2013274796

PATIENT
  Age: 31 Year
  Sex: Male
  Weight: 89.8 kg

DRUGS (2)
  1. CHANTIX [Suspect]
     Indication: SMOKING CESSATION THERAPY
     Dosage: UNK
     Dates: start: 2013
  2. METHADONE [Concomitant]
     Indication: PAIN
     Dosage: UNK

REACTIONS (1)
  - Drug screen positive [Unknown]
